FAERS Safety Report 17347492 (Version 4)
Quarter: 2021Q2

REPORT INFORMATION
  Report Type: Spontaneous
  Country: US (occurrence: US)
  Receive Date: 20200130
  Receipt Date: 20210505
  Transmission Date: 20210716
  Serious: Yes (Other)
  Sender: FDA-Public Use
  Company Number: US-PFIZER INC-2020037953

PATIENT
  Age: 74 Year
  Sex: Female
  Weight: 68.04 kg

DRUGS (6)
  1. IBRANCE [Suspect]
     Active Substance: PALBOCICLIB
     Dosage: 100 MG, CYCLIC, (21 DAYS ON AND 7 DAYS OFF)
     Dates: start: 2019
  2. HYDROXYZINE HCL [Concomitant]
     Active Substance: HYDROXYZINE HYDROCHLORIDE
     Indication: ANXIETY
     Dosage: 25 MG ( AS NEEDED UP TO THREE TIMES PER DAY)
     Route: 048
     Dates: start: 201912
  3. HYDROCODONE [Concomitant]
     Active Substance: HYDROCODONE
     Indication: BACK INJURY
  4. LETROZOLE. [Concomitant]
     Active Substance: LETROZOLE
     Indication: LUNG NEOPLASM MALIGNANT
     Dosage: 2.5 MG, UNK
     Dates: start: 2018
  5. HYDROCODONE [Concomitant]
     Active Substance: HYDROCODONE
     Indication: PAIN
     Dosage: UNK, AS NEEDED (325, HALF A PILL)
     Dates: start: 2017
  6. IBRANCE [Suspect]
     Active Substance: PALBOCICLIB
     Indication: BREAST CANCER STAGE IV
     Dosage: 110 MG

REACTIONS (8)
  - Menopausal symptoms [Recovering/Resolving]
  - Depression [Not Recovered/Not Resolved]
  - Near death experience [Not Recovered/Not Resolved]
  - Fatigue [Recovering/Resolving]
  - Crying [Recovering/Resolving]
  - Claustrophobia [Not Recovered/Not Resolved]
  - Product dose omission issue [Unknown]
  - Product use issue [Unknown]

NARRATIVE: CASE EVENT DATE: 201912
